FAERS Safety Report 7772652-X (Version None)
Quarter: 2011Q3

REPORT INFORMATION
  Report Type: 
  Country: None (occurrence: None)
  Receive Date: 20110922
  Receipt Date: 20110124
  Transmission Date: 20111222
  Serious: No
  Sender: FDA-Public Use
  Company Number: US-ASTRAZENECA-2011SE03924

PATIENT
  Age: 53 Year
  Sex: Female

DRUGS (1)
  1. SEROQUEL [Suspect]
     Indication: INSOMNIA
     Route: 048

REACTIONS (6)
  - ADVERSE DRUG REACTION [None]
  - MUSCLE SPASMS [None]
  - ILL-DEFINED DISORDER [None]
  - PSYCHOMOTOR HYPERACTIVITY [None]
  - PARAESTHESIA [None]
  - PALPITATIONS [None]
